FAERS Safety Report 4346003-7 (Version None)
Quarter: 2004Q2

REPORT INFORMATION
  Report Type: 
  Country: None (occurrence: None)
  Receive Date: 20040423
  Receipt Date: 20040423
  Transmission Date: 20050107
  Serious: No
  Sender: FDA-Public Use
  Company Number: None

PATIENT
  Age: 42 Year
  Sex: Male
  Weight: 99.7913 kg

DRUGS (1)
  1. DURAGESIC [Suspect]
     Dosage: 75 MCG EVER 72 HO TRANSDERMAL
     Route: 062

REACTIONS (5)
  - DIARRHOEA [None]
  - NAUSEA [None]
  - PHARMACEUTICAL PRODUCT COMPLAINT [None]
  - SYNCOPE [None]
  - VOMITING [None]
